FAERS Safety Report 7092018-8 (Version None)
Quarter: 2010Q4

REPORT INFORMATION
  Report Type: 
  Country: None (occurrence: None)
  Receive Date: 20101109
  Receipt Date: 20080911
  Transmission Date: 20110411
  Serious: No
  Sender: FDA-Public Use
  Company Number: US-KINGPHARMUSA00001-K200801078

PATIENT
  Age: 50 Year
  Sex: Male
  Weight: 118.37 kg

DRUGS (5)
  1. SKELAXIN [Suspect]
     Indication: MUSCLE SPASMS
     Dosage: 800 MG, TID
     Route: 048
     Dates: start: 20080811
  2. DIABETA [Concomitant]
     Indication: TYPE 2 DIABETES MELLITUS
     Dosage: 5 MG, QD
     Route: 048
  3. LISINOPRIL [Concomitant]
     Dosage: 20 MG, QD
     Route: 048
  4. FLEXERIL [Concomitant]
     Indication: MUSCLE SPASMS
  5. VICOPROFEN [Concomitant]
     Indication: PAIN

REACTIONS (1)
  - BLOOD GLUCOSE INCREASED [None]
